FAERS Safety Report 8788952 (Version 2)
Quarter: 2013Q4

REPORT INFORMATION
  Report Type: Spontaneous
  Country: US (occurrence: US)
  Receive Date: 20120915
  Receipt Date: 20131101
  Transmission Date: 20140711
  Serious: No
  Sender: FDA-Public Use
  Company Number: US-009507513-1209USA005255

PATIENT
  Age: 30 Year
  Sex: Male

DRUGS (2)
  1. DULERA [Suspect]
     Indication: ASTHMA
     Dosage: 100 MCG / 5 MCG
     Route: 048
  2. SINGULAIR [Concomitant]

REACTIONS (1)
  - Oropharyngeal pain [Unknown]
